FAERS Safety Report 14033420 (Version 1)
Quarter: 2017Q4

REPORT INFORMATION
  Report Type: Spontaneous
  Country: US (occurrence: US)
  Receive Date: 20171002
  Receipt Date: 20171002
  Transmission Date: 20180321
  Serious: No
  Sender: FDA-Public Use
  Company Number: US-JAZZ-2017-US-010421

PATIENT
  Sex: Female

DRUGS (19)
  1. METOPROLOL SUCC CT [Concomitant]
  2. OMEPRAZOLE. [Concomitant]
     Active Substance: OMEPRAZOLE
  3. LIPITOR [Concomitant]
     Active Substance: ATORVASTATIN CALCIUM
  4. XYREM [Suspect]
     Active Substance: SODIUM OXYBATE
     Indication: NARCOLEPSY
     Dosage: 2.25G, BID
     Route: 048
     Dates: start: 201402, end: 2014
  5. ESTRADIOL. [Concomitant]
     Active Substance: ESTRADIOL
  6. COMBIPATCH [Concomitant]
     Active Substance: ESTRADIOL\NORETHINDRONE ACETATE
  7. DICLOFENAC SODICO                  /00372301/ [Concomitant]
  8. VITAMIN D                          /00107901/ [Concomitant]
     Active Substance: ERGOCALCIFEROL
  9. NORETHINDRONE                      /00044901/ [Concomitant]
     Active Substance: NORETHINDRONE
  10. XYREM [Suspect]
     Active Substance: SODIUM OXYBATE
     Dosage: DOSE ADJUSTMENTS
     Route: 048
     Dates: start: 2014, end: 201404
  11. AMBIEN [Concomitant]
     Active Substance: ZOLPIDEM TARTRATE
  12. KLONOPIN [Concomitant]
     Active Substance: CLONAZEPAM
  13. XYREM [Suspect]
     Active Substance: SODIUM OXYBATE
     Route: 048
     Dates: start: 2014, end: 2014
  14. XYREM [Suspect]
     Active Substance: SODIUM OXYBATE
     Dosage: 6.5G, BID
     Route: 048
     Dates: start: 201404, end: 2017
  15. LEVOTHROID [Concomitant]
     Active Substance: LEVOTHYROXINE SODIUM
  16. XYREM [Suspect]
     Active Substance: SODIUM OXYBATE
     Dosage: 6.5G, BID
     Route: 048
     Dates: start: 201404
  17. CYANOCOBALAMIN. [Concomitant]
     Active Substance: CYANOCOBALAMIN
  18. NUVIGIL [Concomitant]
     Active Substance: ARMODAFINIL
  19. VIIBRYD [Concomitant]
     Active Substance: VILAZODONE HYDROCHLORIDE

REACTIONS (2)
  - Intentional product use issue [Unknown]
  - Weight decreased [Unknown]
